FAERS Safety Report 7553466-2 (Version None)
Quarter: 2011Q2

REPORT INFORMATION
  Report Type: 
  Country: None (occurrence: None)
  Receive Date: 20110617
  Receipt Date: 20110602
  Transmission Date: 20111010
  Serious: Yes (Other)
  Sender: FDA-Public Use
  Company Number: US-BAYER-201032092NA

PATIENT
  Sex: Male
  Weight: 107 kg

DRUGS (3)
  1. LISINOPRIL [Concomitant]
  2. TRASYLOL [Suspect]
     Indication: CORONARY ARTERY BYPASS
     Dosage: UNK
     Route: 042
     Dates: start: 20060617
  3. TRASYLOL [Suspect]
     Indication: CARDIAC OPERATION

REACTIONS (7)
  - ANXIETY [None]
  - RENAL FAILURE [None]
  - CEREBROVASCULAR ACCIDENT [None]
  - EMOTIONAL DISTRESS [None]
  - RENAL FAILURE ACUTE [None]
  - INJURY [None]
  - PAIN [None]
